FAERS Safety Report 14525329 (Version 2)
Quarter: 2018Q3

REPORT INFORMATION
  Report Type: Report from Study
  Country: DE (occurrence: DE)
  Receive Date: 20180213
  Receipt Date: 20180718
  Transmission Date: 20181010
  Serious: Yes (Hospitalization)
  Sender: FDA-Public Use
  Company Number: DE-JNJFOC-20130200078

PATIENT
  Age: 70 Year
  Sex: Female

DRUGS (13)
  1. GOLIMUMAB [Suspect]
     Active Substance: GOLIMUMAB
     Indication: RHEUMATOID ARTHRITIS
     Route: 058
     Dates: start: 20120417
  2. ASPIRIN. [Concomitant]
     Active Substance: ASPIRIN
     Route: 065
  3. GOLIMUMAB [Suspect]
     Active Substance: GOLIMUMAB
     Indication: RHEUMATOID ARTHRITIS
     Route: 058
     Dates: start: 20110414
  4. GOLIMUMAB [Suspect]
     Active Substance: GOLIMUMAB
     Indication: RHEUMATOID ARTHRITIS
     Route: 058
     Dates: start: 20110708
  5. GOLIMUMAB [Suspect]
     Active Substance: GOLIMUMAB
     Indication: RHEUMATOID ARTHRITIS
     Route: 058
     Dates: start: 20111006
  6. CLEXANE [Concomitant]
     Active Substance: ENOXAPARIN SODIUM
     Route: 065
  7. OMEPRAZOLE. [Concomitant]
     Active Substance: OMEPRAZOLE
     Route: 065
  8. METHOTREXATE. [Concomitant]
     Active Substance: METHOTREXATE
     Route: 065
     Dates: start: 20121111
  9. GOLIMUMAB [Suspect]
     Active Substance: GOLIMUMAB
     Indication: RHEUMATOID ARTHRITIS
     Route: 058
     Dates: start: 20121011
  10. METHOTREXATE. [Concomitant]
     Active Substance: METHOTREXATE
     Dosage: 4 DOSES
     Route: 065
     Dates: start: 20110414
  11. ATORVASTATIN [Concomitant]
     Active Substance: ATORVASTATIN
     Route: 065
  12. PREDNISOLONE. [Concomitant]
     Active Substance: PREDNISOLONE
     Route: 065
  13. FOLSAN [Concomitant]
     Active Substance: FOLIC ACID
     Route: 065

REACTIONS (2)
  - Phlebectomy [Recovered/Resolved]
  - Neuroendocrine carcinoma of the skin [Not Recovered/Not Resolved]

NARRATIVE: CASE EVENT DATE: 20120412
